FAERS Safety Report 21749362 (Version 1)
Quarter: 2022Q4

REPORT INFORMATION
  Report Type: Spontaneous
  Country: US (occurrence: None)
  Receive Date: 20221217
  Receipt Date: 20221217
  Transmission Date: 20230113
  Serious: Yes (Other)
  Sender: FDA-Public Use
  Company Number: None

PATIENT
  Age: 51 Year
  Sex: Female

DRUGS (1)
  1. CARBAMAZEPINE [Suspect]
     Active Substance: CARBAMAZEPINE
     Indication: Bipolar disorder
     Dosage: 200MG DAILY ORAL
     Route: 048

REACTIONS (4)
  - Product substitution issue [None]
  - Affective disorder [None]
  - Depression [None]
  - Mood swings [None]

NARRATIVE: CASE EVENT DATE: 20221015
